FAERS Safety Report 8992083 (Version 1)
Quarter: 2012Q4

REPORT INFORMATION
  Report Type: 
  Country: US (occurrence: US)
  Receive Date: 20121231
  Receipt Date: 20121231
  Transmission Date: 20130627
  Serious: No
  Sender: FDA-Public Use
  Company Number: US-009507513-1212USA011231

PATIENT
  Age: 4 Year
  Sex: Female
  Weight: 24.94 kg

DRUGS (1)
  1. CLARITIN REDITABS 12HR [Suspect]
     Indication: HYPERSENSITIVITY
     Dosage: 25 mg, Once
     Route: 048
     Dates: start: 20121208

REACTIONS (2)
  - Overdose [Not Recovered/Not Resolved]
  - Accidental exposure to product by child [Not Recovered/Not Resolved]
